FAERS Safety Report 5052412-3 (Version None)
Quarter: 2006Q3

REPORT INFORMATION
  Report Type: 
  Country: None (occurrence: None)
  Receive Date: 20060717
  Receipt Date: 20060620
  Transmission Date: 20061208
  Serious: Yes (Other)
  Sender: FDA-Public Use
  Company Number: PHBS2006FR09389

PATIENT
  Age: 28 Year
  Sex: Female

DRUGS (3)
  1. CARBAMAZEPINE [Suspect]
     Indication: MALIGNANT OLIGODENDROGLIOMA
     Route: 065
  2. PREDNISOLONE [Concomitant]
     Dosage: 60 MG
  3. PREDNISOLONE [Concomitant]
     Dosage: 80 MG

REACTIONS (4)
  - CAESAREAN SECTION [None]
  - DRUG EXPOSURE DURING PREGNANCY [None]
  - NORMAL NEWBORN [None]
  - PREMATURE BABY [None]
